FAERS Safety Report 6836065-7 (Version None)
Quarter: 2010Q3

REPORT INFORMATION
  Report Type: 
  Country: None (occurrence: None)
  Receive Date: 20100713
  Receipt Date: 20100701
  Transmission Date: 20110219
  Serious: Yes (Other)
  Sender: FDA-Public Use
  Company Number: US-ROCHE-690652

PATIENT
  Sex: Female
  Weight: 56.2 kg

DRUGS (4)
  1. ACCUTANE [Suspect]
     Dosage: OTHER INDICATION: CYSTIC ACNE
     Route: 048
     Dates: start: 20040103, end: 20040301
  2. AMNESTEEM [Suspect]
     Dosage: OTHER INDICATION: CYSTIC ACNE
     Route: 065
     Dates: start: 20040301, end: 20040601
  3. TYLENOL-500 [Concomitant]
  4. YAZ [Concomitant]

REACTIONS (10)
  - BLOOD TRIGLYCERIDES INCREASED [None]
  - COLITIS ULCERATIVE [None]
  - CROHN'S DISEASE [None]
  - DEPRESSION [None]
  - DRY SKIN [None]
  - INFLAMMATORY BOWEL DISEASE [None]
  - INTESTINAL HAEMORRHAGE [None]
  - LIP DRY [None]
  - PROCTITIS [None]
  - RASH PRURITIC [None]
